FAERS Safety Report 6602673-1 (Version None)
Quarter: 2010Q1

REPORT INFORMATION
  Report Type: 
  Country: None (occurrence: None)
  Receive Date: 20100218
  Receipt Date: 20100203
  Transmission Date: 20100710
  Serious: Yes (Hospitalization, Other)
  Sender: FDA-Public Use
  Company Number: 2010000442

PATIENT
  Age: 57 Year
  Sex: Male

DRUGS (2)
  1. ERLOTINIB (ERLOTINIB) (TABLET) (ERLOTINIB) [Suspect]
     Indication: METASTATIC CARCINOID TUMOUR
     Dosage: (150 MG), ORAL
     Route: 048
     Dates: start: 20090911, end: 20100105
  2. EVEROLIMUS (EVEROLIMUS) [Suspect]
     Indication: METASTATIC CARCINOID TUMOUR
     Dosage: (5 MG), ORAL
     Route: 048
     Dates: start: 20090911, end: 20100105

REACTIONS (12)
  - ABDOMINAL PAIN [None]
  - ASTHENIA [None]
  - BLOOD ALKALINE PHOSPHATASE INCREASED [None]
  - BLOOD BILIRUBIN INCREASED [None]
  - DECREASED APPETITE [None]
  - DISEASE PROGRESSION [None]
  - FATIGUE [None]
  - HAEMATOCRIT DECREASED [None]
  - HYPONATRAEMIA [None]
  - NECROSIS [None]
  - PYREXIA [None]
  - THROMBOCYTOPENIA [None]
